FAERS Safety Report 5094633-X (Version None)
Quarter: 2006Q3

REPORT INFORMATION
  Report Type: 
  Country: None (occurrence: None)
  Receive Date: 20060830
  Receipt Date: 20060814
  Transmission Date: 20061208
  Serious: Yes (Hospitalization, Other)
  Sender: FDA-Public Use
  Company Number: US200601003909

PATIENT
  Age: 64 Year
  Sex: Male
  Weight: 103.4 kg

DRUGS (2)
  1. ZYPREXA [Suspect]
     Indication: DEPRESSION
     Dosage: 2.5 MG
     Dates: start: 19971014, end: 20041001
  2. METOPROLOL (METOPROLOL) [Concomitant]

REACTIONS (6)
  - BLOOD TRIGLYCERIDES INCREASED [None]
  - DIABETES MELLITUS NON-INSULIN-DEPENDENT [None]
  - MYOCARDIAL INFARCTION [None]
  - OBESITY [None]
  - VISION BLURRED [None]
  - WEIGHT INCREASED [None]
